FAERS Safety Report 9006079 (Version 5)
Quarter: 2013Q2

REPORT INFORMATION
  Report Type: Report from Study
  Country: US (occurrence: US)
  Receive Date: 20130109
  Receipt Date: 20130510
  Transmission Date: 20140414
  Serious: Yes (Other)
  Sender: FDA-Public Use
  Company Number: PHEH2013US000655

PATIENT
  Age: 50 Year
  Sex: Female

DRUGS (12)
  1. GILENYA [Suspect]
     Indication: RELAPSING-REMITTING MULTIPLE SCLEROSIS
     Dosage: 0.5 MG, QD
     Route: 048
     Dates: start: 20111015
  2. LISINOPRIL [Concomitant]
     Indication: HYPERTENSION
  3. PREMPRO [Concomitant]
     Indication: MENOPAUSAL SYMPTOMS
     Dosage: UNK UKN, UNK
  4. NEXIUM [Concomitant]
     Indication: GASTROOESOPHAGEAL REFLUX DISEASE
     Dosage: 40 MG, EVERY MORNING
     Route: 048
     Dates: start: 2005
  5. WELLBUTRIN [Concomitant]
     Indication: DEPRESSION
     Dosage: 200 MG, QD
     Route: 048
     Dates: start: 2005
  6. FLUOXETINE [Concomitant]
     Indication: DEPRESSION
  7. NEURONTIN [Concomitant]
     Dosage: 100 MG, BID
  8. SEROQUEL [Concomitant]
     Indication: INSOMNIA
     Dosage: 25 MG, AT BEDTIME
     Route: 048
     Dates: start: 2005
  9. PROVIGIL [Concomitant]
     Indication: FATIGUE
     Dosage: 200 MG, QD
     Route: 048
     Dates: start: 2004
  10. REGLAN [Concomitant]
     Indication: ABDOMINAL DISCOMFORT
     Dosage: 10 MG, EVERY MORNING
     Route: 048
     Dates: start: 2005
  11. ZELNORM [Concomitant]
     Indication: CONSTIPATION
     Dosage: 6 MG, QD
     Route: 048
     Dates: start: 2008
  12. LIPITOR [Concomitant]
     Indication: HYPERLIPIDAEMIA
     Dosage: 20 MG, QHS
     Route: 048
     Dates: start: 2009

REACTIONS (2)
  - Papilloma viral infection [Not Recovered/Not Resolved]
  - Neoplasm progression [Not Recovered/Not Resolved]
